FAERS Safety Report 6408479-0 (Version None)
Quarter: 2009Q4

REPORT INFORMATION
  Report Type: 
  Country: None (occurrence: None)
  Receive Date: 20091021
  Receipt Date: 20091016
  Transmission Date: 20100525
  Serious: Yes (Hospitalization)
  Sender: FDA-Public Use
  Company Number: FR-TEVA-212582ISR

PATIENT
  Age: 72 Year
  Sex: Male

DRUGS (3)
  1. FLUOROURACIL [Suspect]
     Indication: GASTRIC CANCER
  2. FOLINIC ACID [Suspect]
     Indication: GASTRIC CANCER
  3. IRINOTECAN HYDROCHLORIDE [Suspect]
     Indication: GASTRIC CANCER

REACTIONS (2)
  - GENERAL PHYSICAL HEALTH DETERIORATION [None]
  - RENAL FAILURE [None]
